FAERS Safety Report 8760802 (Version 3)
Quarter: 2012Q4

REPORT INFORMATION
  Report Type: 
  Country: US (occurrence: US)
  Receive Date: 20120830
  Receipt Date: 20121114
  Transmission Date: 20130627
  Serious: Yes (Other)
  Sender: FDA-Public Use
  Company Number: US-PURDUE-USA-2012-0091941

PATIENT
  Age: 45 None
  Sex: Male

DRUGS (9)
  1. OXYCODONE HYDROCHLORIDE (SIMILAR TO NDA 22-272) [Suspect]
     Indication: CONVULSION
  2. ONFI [Suspect]
     Indication: EPILEPSY
     Dosage: 10 mg, bid
     Route: 048
     Dates: start: 201206
  3. ONFI [Suspect]
     Indication: TEMPORAL LOBE EPILEPSY
     Dosage: 5 mg, daily
     Route: 048
     Dates: start: 201206
  4. ONFI [Suspect]
     Dosage: 15 mg, bid
     Route: 048
     Dates: start: 20120724
  5. ONFI [Suspect]
     Dosage: 15 mg, tid
     Route: 048
  6. ONFI [Suspect]
     Dosage: 5 mg, tid
     Route: 048
  7. KLONOPIN [Concomitant]
     Indication: CONVULSION
  8. BANZEL [Concomitant]
     Indication: PRODUCT USED FOR UNKNOWN INDICATION
  9. FELBATOL [Concomitant]
     Indication: PRODUCT USED FOR UNKNOWN INDICATION

REACTIONS (14)
  - Rib fracture [Unknown]
  - Atonic seizures [Unknown]
  - Fall [Unknown]
  - Skeletal injury [Not Recovered/Not Resolved]
  - Joint injury [Not Recovered/Not Resolved]
  - Intervertebral disc compression [Unknown]
  - Sedation [Unknown]
  - Joint swelling [Not Recovered/Not Resolved]
  - Balance disorder [Unknown]
  - Aggression [Unknown]
  - Vertigo [Unknown]
  - Irritability [Unknown]
  - Abdominal distension [Not Recovered/Not Resolved]
  - Constipation [Unknown]
